FAERS Safety Report 5336992-6 (Version None)
Quarter: 2007Q2

REPORT INFORMATION
  Report Type: 
  Country: None (occurrence: None)
  Receive Date: 20070523
  Receipt Date: 20070509
  Transmission Date: 20071010
  Serious: Yes (Hospitalization)
  Sender: FDA-Public Use
  Company Number: S07-IRL-02108-01

PATIENT
  Age: 75 Year
  Sex: Female

DRUGS (1)
  1. LEXAPRO [Suspect]
     Dosage: 10 MG QD
     Dates: start: 20040810

REACTIONS (2)
  - ARRHYTHMIA [None]
  - SEROTONIN SYNDROME [None]
